FAERS Safety Report 7123513-0 (Version None)
Quarter: 2010Q4

REPORT INFORMATION
  Report Type: 
  Country: None (occurrence: None)
  Receive Date: 20101125
  Receipt Date: 20101116
  Transmission Date: 20110411
  Serious: Yes (Other)
  Sender: FDA-Public Use
  Company Number: NL-PFIZER INC-2010150015

PATIENT
  Age: 43 Year
  Sex: Female

DRUGS (2)
  1. LIPITOR [Suspect]
     Dosage: 10 MG, UNK
     Dates: start: 20080101
  2. LIPITOR [Suspect]
     Dosage: 20 MG, UNK
     Dates: end: 20080101

REACTIONS (1)
  - OROPHARYNGEAL BLISTERING [None]
